FAERS Safety Report 7739286-4 (Version None)
Quarter: 2011Q3

REPORT INFORMATION
  Report Type: 
  Country: None (occurrence: None)
  Receive Date: 20110909
  Receipt Date: 20110830
  Transmission Date: 20111222
  Serious: Yes (Other)
  Sender: FDA-Public Use
  Company Number: US-JNJFOC-20110803482

PATIENT
  Sex: Female
  Weight: 46.72 kg

DRUGS (4)
  1. SOLU-MEDROL [Concomitant]
     Indication: PREMEDICATION
     Dates: start: 20110701
  2. BENADRYL [Concomitant]
     Indication: PREMEDICATION
  3. REMICADE [Suspect]
     Indication: COLITIS ULCERATIVE
     Route: 042
     Dates: start: 20110711, end: 20110725
  4. AZATHIOPRINE [Suspect]
     Indication: COLITIS
     Route: 065
     Dates: start: 20110606, end: 20110719

REACTIONS (6)
  - PANCYTOPENIA [None]
  - STRESS [None]
  - HEADACHE [None]
  - MIGRAINE [None]
  - ANXIETY [None]
  - DIARRHOEA [None]
